FAERS Safety Report 14474157 (Version 3)
Quarter: 2018Q1

REPORT INFORMATION
  Report Type: Spontaneous
  Country: US (occurrence: US)
  Receive Date: 20180201
  Receipt Date: 20180308
  Transmission Date: 20180509
  Serious: No
  Sender: FDA-Public Use
  Company Number: US-MERZ NORTH AMERICA, INC.-18MRZ-00049

PATIENT
  Sex: Male
  Weight: 84.9 kg

DRUGS (3)
  1. XEOMIN [Suspect]
     Active Substance: INCOBOTULINUMTOXINA
     Indication: SKIN WRINKLING
  2. XEOMIN [Suspect]
     Active Substance: INCOBOTULINUMTOXINA
     Indication: SKIN WRINKLING
     Dosage: 44 TOTAL UNITS: CORRUGATORS 16 UNITS, PROCERUS 6 UNITS, FRONTALIS 10 UNITS, AND CROW^S FEET 12 UNITS
     Route: 030
     Dates: start: 20171103, end: 20171103
  3. XEOMIN [Suspect]
     Active Substance: INCOBOTULINUMTOXINA
     Indication: SKIN COSMETIC PROCEDURE

REACTIONS (1)
  - Drug ineffective [Unknown]
